FAERS Safety Report 4587231-5 (Version None)
Quarter: 2005Q1

REPORT INFORMATION
  Report Type: 
  Country: None (occurrence: None)
  Receive Date: 20050218
  Receipt Date: 20041222
  Transmission Date: 20050727
  Serious: Yes (Life-Threatening)
  Sender: FDA-Public Use
  Company Number: JP-GLAXOSMITHKLINE-B0362930A

PATIENT
  Age: 69 Year
  Sex: Male
  Weight: 52 kg

DRUGS (8)
  1. PAXIL [Suspect]
     Indication: DEPRESSIVE SYMPTOM
     Dosage: 10MG PER DAY
     Route: 048
     Dates: start: 20041126, end: 20041214
  2. DROXIDOPA [Suspect]
     Indication: PARKINSONISM
     Route: 048
     Dates: start: 20041125, end: 20041214
  3. CABERGOLINE [Concomitant]
     Indication: PARKINSONISM
     Route: 048
     Dates: start: 20040801, end: 20041214
  4. AMOBAN [Concomitant]
     Indication: INSOMNIA
     Dosage: 7.5MG PER DAY
     Route: 048
     Dates: start: 20041101, end: 20041214
  5. ARICEPT [Concomitant]
     Indication: DEMENTIA
     Dosage: 5MG PER DAY
     Route: 048
     Dates: end: 20041130
  6. MAGNESIUM OXIDE [Concomitant]
     Indication: CONSTIPATION
     Dosage: 6G PER DAY
     Route: 048
  7. ULCERMIN [Concomitant]
     Indication: GASTRITIS
     Dosage: 4.5G PER DAY
     Route: 048
     Dates: end: 20041214
  8. LAXOBERON [Concomitant]
     Indication: CONSTIPATION
     Dosage: 5MG PER DAY
     Route: 048

REACTIONS (5)
  - AGRANULOCYTOSIS [None]
  - PYREXIA [None]
  - SEPSIS [None]
  - THERAPY NON-RESPONDER [None]
  - WHITE BLOOD CELL COUNT DECREASED [None]
